FAERS Safety Report 9672113 (Version 3)
Quarter: 2014Q1

REPORT INFORMATION
  Report Type: Spontaneous
  Country: JP (occurrence: JP)
  Receive Date: 20131106
  Receipt Date: 20140124
  Transmission Date: 20141002
  Serious: Yes (Other)
  Sender: FDA-Public Use
  Company Number: JP-JNJFOC-20131006524

PATIENT
  Age: 10 Year
  Sex: Male
  Weight: 16 kg

DRUGS (30)
  1. TOPINA [Suspect]
     Indication: EPILEPSY
     Route: 048
     Dates: start: 20120207, end: 20120220
  2. TOPINA [Suspect]
     Indication: EPILEPSY
     Route: 048
     Dates: start: 20110719, end: 20120206
  3. TOPINA [Suspect]
     Indication: EPILEPSY
     Route: 048
     Dates: start: 20110620, end: 20110718
  4. TOPINA [Suspect]
     Indication: EPILEPSY
     Route: 048
     Dates: start: 20100811, end: 20110619
  5. TOPINA [Suspect]
     Indication: EPILEPSY
     Route: 048
     Dates: start: 20100531, end: 20100810
  6. TOPINA [Suspect]
     Indication: EPILEPSY
     Route: 048
     Dates: start: 20100430, end: 20100530
  7. TOPINA [Suspect]
     Indication: EPILEPSY
     Route: 048
     Dates: start: 20100301, end: 20100429
  8. TOPINA [Suspect]
     Indication: EPILEPSY
     Route: 048
     Dates: start: 20100215, end: 20100228
  9. TOPINA [Suspect]
     Indication: EPILEPSY
     Route: 048
     Dates: start: 20100106, end: 20100214
  10. TOPINA [Suspect]
     Indication: EPILEPSY
     Route: 048
     Dates: start: 20091221, end: 20100105
  11. TOPINA [Suspect]
     Indication: EPILEPSY
     Route: 048
     Dates: start: 20091125, end: 20091220
  12. TOPINA [Suspect]
     Indication: EPILEPSY
     Route: 048
     Dates: start: 20120221, end: 20120305
  13. TOPINA [Suspect]
     Indication: EPILEPSY
     Route: 048
     Dates: start: 20120306, end: 20120318
  14. TOPINA [Suspect]
     Indication: EPILEPSY
     Route: 048
     Dates: start: 20120319, end: 20120909
  15. TOPINA [Suspect]
     Indication: EPILEPSY
     Route: 048
     Dates: start: 20130910, end: 20131015
  16. TOPINA [Suspect]
     Indication: EPILEPSY
     Route: 048
     Dates: start: 20131016, end: 20131118
  17. TOPINA [Suspect]
     Indication: EPILEPSY
     Route: 048
     Dates: start: 20131119, end: 20131202
  18. TOPINA [Suspect]
     Indication: EPILEPSY
     Route: 048
     Dates: start: 20131203, end: 20131209
  19. TOPINA [Suspect]
     Indication: EPILEPSY
     Route: 048
     Dates: start: 20131210
  20. TOPINA [Suspect]
     Indication: EPILEPSY
     Route: 048
     Dates: start: 20091123, end: 20091124
  21. TOPINA [Suspect]
     Indication: EPILEPSY
     Route: 048
     Dates: start: 20091102, end: 20091122
  22. KEPPRA (LEVETIRACETAM) [Concomitant]
     Route: 048
  23. OSPOLOT [Concomitant]
     Route: 048
  24. OSPOLOT [Concomitant]
     Route: 048
  25. SELENICA-R [Concomitant]
     Route: 048
  26. SELENICA-R [Concomitant]
     Route: 048
  27. ULCERLMIN [Concomitant]
     Route: 048
  28. FERROMIA [Concomitant]
     Route: 048
  29. LACTOMIN [Concomitant]
     Route: 048
  30. LACTOMIN [Concomitant]
     Route: 065

REACTIONS (4)
  - Metabolic acidosis [Not Recovered/Not Resolved]
  - Developmental delay [Not Recovered/Not Resolved]
  - Decreased appetite [Recovering/Resolving]
  - Hyperammonaemia [Recovering/Resolving]
